FAERS Safety Report 6183765-0 (Version None)
Quarter: 2009Q2

REPORT INFORMATION
  Report Type: 
  Country: None (occurrence: None)
  Receive Date: 20090508
  Receipt Date: 20090126
  Transmission Date: 20091009
  Serious: No
  Sender: FDA-Public Use
  Company Number: A0765908A

PATIENT

DRUGS (3)
  1. ALTABAX [Suspect]
     Indication: SKIN INFECTION
     Dosage: 1APP TWICE PER DAY
     Route: 061
     Dates: start: 20090101, end: 20090101
  2. ANTIBIOTIC [Concomitant]
     Route: 061
  3. ANTIBIOTIC [Concomitant]
     Route: 048

REACTIONS (2)
  - DERMATITIS CONTACT [None]
  - HYPERSENSITIVITY [None]
